FAERS Safety Report 12796746 (Version 1)
Quarter: 2016Q3

REPORT INFORMATION
  Report Type: Spontaneous
  Country: US (occurrence: CA)
  Receive Date: 20160929
  Receipt Date: 20160929
  Transmission Date: 20161109
  Serious: Yes (Other)
  Sender: FDA-Public Use
  Company Number: US-009507513-1609CAN012375

PATIENT

DRUGS (1)
  1. CUBICIN [Suspect]
     Active Substance: DAPTOMYCIN
     Indication: INFECTION
     Dosage: UNK, QD
     Route: 051

REACTIONS (3)
  - Staphylococcal infection [Unknown]
  - Drug dose omission [Unknown]
  - Pathogen resistance [Unknown]
